FAERS Safety Report 9399940 (Version 1)
Quarter: 2013Q3

REPORT INFORMATION
  Report Type: Spontaneous
  Country: US (occurrence: US)
  Receive Date: 20130715
  Receipt Date: 20130715
  Transmission Date: 20140515
  Serious: Yes (Other)
  Sender: FDA-Public Use
  Company Number: US-BAYER-2013-083507

PATIENT
  Sex: 0

DRUGS (2)
  1. ALEVE CAPLET [Suspect]
     Indication: SWELLING
     Dosage: UNK
  2. ALEVE CAPLET [Suspect]
     Indication: PAIN

REACTIONS (2)
  - Drug dependence [None]
  - Extra dose administered [None]
